FAERS Safety Report 17641746 (Version 13)
Quarter: 2024Q2

REPORT INFORMATION
  Report Type: Other
  Country: CA (occurrence: None)
  Receive Date: 20200408
  Receipt Date: 20240529
  Transmission Date: 20240716
  Serious: Yes (Other)
  Sender: FDA-Public Use
  Company Number: CA-ROCHE-2573019

PATIENT
  Age: 61 Year
  Sex: Female
  Weight: 62 kg

DRUGS (7)
  1. PERJETA [Suspect]
     Active Substance: PERTUZUMAB
     Indication: Breast cancer
     Dosage: DRUG DOSE FIRST ADMINISTERED IS 840 MG MILLIGRAM(S)?LOADING DOSE EVERY
     Route: 042
     Dates: start: 20200304, end: 20200304
  2. PERJETA [Suspect]
     Active Substance: PERTUZUMAB
     Dosage: ONGOING
     Route: 042
     Dates: start: 20200325
  3. HERCEPTIN [Suspect]
     Active Substance: TRASTUZUMAB
     Indication: Breast cancer
     Dosage: ONGOING
     Route: 041
     Dates: start: 202003
  4. METFORMIN [Concomitant]
     Active Substance: METFORMIN HYDROCHLORIDE
     Indication: Product used for unknown indication
  5. ATORVASTATIN [Concomitant]
     Active Substance: ATORVASTATIN
     Indication: Product used for unknown indication
  6. ENALAPRIL [Concomitant]
     Active Substance: ENALAPRIL
     Indication: Product used for unknown indication
  7. FISH OIL [Concomitant]
     Active Substance: FISH OIL
     Indication: Product used for unknown indication

REACTIONS (6)
  - Haematological infection [Unknown]
  - Pneumonia [Unknown]
  - Large intestine infection [Unknown]
  - Blood pressure systolic increased [Unknown]
  - Asthenia [Unknown]
  - Procedural pain [Unknown]

NARRATIVE: CASE EVENT DATE: 20200507
